FAERS Safety Report 4847145-X (Version None)
Quarter: 2005Q4

REPORT INFORMATION
  Report Type: 
  Country: None (occurrence: None)
  Receive Date: 20051205
  Receipt Date: 20051205
  Transmission Date: 20060501
  Serious: Yes (Other)
  Sender: FDA-Public Use
  Company Number: None

PATIENT
  Age: 73 Year
  Sex: Male
  Weight: 73 kg

DRUGS (6)
  1. OXALIPLATIN @ 130 MG/M2 Q 3 WKS [Suspect]
     Indication: OESOPHAGEAL CANCER METASTATIC
     Dosage: 230 MG
     Dates: start: 20050927
  2. DOCETAXEL @ 50 MG/M2 Q WK X 2 OF 3 WKS [Suspect]
     Indication: OESOPHAGEAL CANCER METASTATIC
     Dosage: 93 MG
     Dates: start: 20050927
  3. DOCETAXEL @ 50 MG/M2 Q WK X 2 OF 3 WKS [Suspect]
     Indication: OESOPHAGEAL CANCER METASTATIC
     Dosage: 93 MG
     Dates: start: 20051004
  4. LIPITOR [Concomitant]
  5. METOPROLOL [Concomitant]
  6. K-DUR 10 [Concomitant]

REACTIONS (4)
  - DIARRHOEA [None]
  - DRUG TOXICITY [None]
  - LEUKOPENIA [None]
  - NEUTROPENIA [None]
